FAERS Safety Report 11201499 (Version 1)
Quarter: 2015Q2

REPORT INFORMATION
  Report Type: Spontaneous
  Country: US (occurrence: None)
  Receive Date: 20150618
  Receipt Date: 20150618
  Transmission Date: 20150821
  Serious: No
  Sender: FDA-Public Use
  Company Number: None

PATIENT
  Age: 52 Year
  Sex: Female

DRUGS (11)
  1. TADALAFIL [Concomitant]
     Active Substance: TADALAFIL
  2. OMEPRAZOLE. [Concomitant]
     Active Substance: OMEPRAZOLE
  3. METOCLOPRAMIDE. [Concomitant]
     Active Substance: METOCLOPRAMIDE
  4. METOLAZONE. [Concomitant]
     Active Substance: METOLAZONE
  5. TRACLEER [Suspect]
     Active Substance: BOSENTAN\BOSENTAN MONOHYDRATE
     Indication: COR PULMONALE CHRONIC
     Route: 048
     Dates: start: 20150501, end: 20150515
  6. FUROSEMIDE. [Concomitant]
     Active Substance: FUROSEMIDE
  7. PAROXETINE [Concomitant]
     Active Substance: PAROXETINE\PAROXETINE HYDROCHLORIDE
  8. TRACLEER [Suspect]
     Active Substance: BOSENTAN\BOSENTAN MONOHYDRATE
     Indication: PULMONARY ARTERIAL HYPERTENSION
     Route: 048
     Dates: start: 20150501, end: 20150515
  9. DILTIAZEM [Concomitant]
     Active Substance: DILTIAZEM
  10. KCI [Concomitant]
  11. ALBUTEROL HFA [Concomitant]
     Active Substance: ALBUTEROL SULFATE

REACTIONS (5)
  - Vomiting [None]
  - Fatigue [None]
  - Nausea [None]
  - Abdominal pain upper [None]
  - Dyspnoea [None]

NARRATIVE: CASE EVENT DATE: 20150522
